FAERS Safety Report 4517208-7 (Version None)
Quarter: 2004Q4

REPORT INFORMATION
  Report Type: 
  Country: None (occurrence: None)
  Receive Date: 20041202
  Receipt Date: 20041102
  Transmission Date: 20050328
  Serious: Yes (Hospitalization)
  Sender: FDA-Public Use
  Company Number: PHRM2004FR03290

PATIENT
  Age: 89 Year
  Sex: Male
  Weight: 69 kg

DRUGS (5)
  1. GLEEVEC [Suspect]
     Indication: KAPOSI'S SARCOMA
     Dosage: 400 MG DAILY
     Route: 048
     Dates: start: 20041026, end: 20041030
  2. GLEEVEC [Suspect]
     Dosage: 400 MG DAILY
     Route: 046
     Dates: start: 20041107
  3. CLAMOXYL [Concomitant]
     Indication: ERYSIPELAS
     Dosage: 1 G DAILY
  4. LAMISIL [Concomitant]
     Indication: DERMATOPHYTOSIS
     Dosage: 250 MG DAILY
     Dates: start: 20040901
  5. ENDOTELON [Concomitant]
     Indication: VENOUS INSUFFICIENCY
     Dosage: 2 DF DAILY
     Route: 048

REACTIONS (1)
  - EPISTAXIS [None]
